FAERS Safety Report 12640881 (Version 2)
Quarter: 2016Q4

REPORT INFORMATION
  Report Type: Spontaneous
  Country: US (occurrence: US)
  Receive Date: 20160810
  Receipt Date: 20161003
  Transmission Date: 20170207
  Serious: Yes (Other)
  Sender: FDA-Public Use
  Company Number: US-TEVA-682470USA

PATIENT

DRUGS (1)
  1. COPAXONE [Suspect]
     Active Substance: GLATIRAMER ACETATE
     Route: 058

REACTIONS (3)
  - Drug ineffective [Unknown]
  - Central nervous system lesion [Unknown]
  - Multiple sclerosis relapse [Unknown]
